FAERS Safety Report 10719922 (Version 2)
Quarter: 2015Q1

REPORT INFORMATION
  Report Type: Spontaneous
  Country: US (occurrence: US)
  Receive Date: 20150119
  Receipt Date: 20150119
  Transmission Date: 20150721
  Serious: No
  Sender: FDA-Public Use
  Company Number: US-UNITED THERAPEUTICS-UNT-2014-011100

PATIENT
  Sex: Female
  Weight: 58.5 kg

DRUGS (3)
  1. OPSUMIT [Concomitant]
     Active Substance: MACITENTAN
     Indication: PRODUCT USED FOR UNKNOWN INDICATION
  2. ADCIRCA [Concomitant]
     Active Substance: TADALAFIL
     Indication: PRODUCT USED FOR UNKNOWN INDICATION
  3. REMODULIN [Suspect]
     Active Substance: TREPROSTINIL
     Indication: COR PULMONALE CHRONIC
     Dosage: 0.187 ?G/KG/MIN, CONTINUING
     Route: 041
     Dates: start: 20130416

REACTIONS (8)
  - Pallor [Unknown]
  - Drug dose omission [Unknown]
  - Dizziness [Unknown]
  - Dyspnoea [Unknown]
  - Headache [Unknown]
  - Feeling cold [Unknown]
  - Chills [Unknown]
  - Incorrect dose administered [Unknown]
